FAERS Safety Report 5124203-6 (Version None)
Quarter: 2006Q4

REPORT INFORMATION
  Report Type: 
  Country: None (occurrence: None)
  Receive Date: 20061010
  Receipt Date: 20050523
  Transmission Date: 20070319
  Serious: Yes (Hospitalization, Disabling)
  Sender: FDA-Public Use
  Company Number: 2005GB01020

PATIENT
  Age: 76 Year
  Sex: Male

DRUGS (13)
  1. QUETIAPINE [Suspect]
     Indication: MANIA
     Route: 048
  2. PRIADEL [Interacting]
     Indication: MANIA
     Dosage: INCREASED TO 600MG
     Route: 048
     Dates: end: 20050206
  3. PRIADEL [Interacting]
     Indication: AFFECTIVE DISORDER
     Dosage: INCREASED TO 600MG
     Route: 048
     Dates: end: 20050206
  4. PRIADEL [Interacting]
     Indication: MOOD ALTERED
     Dosage: INCREASED TO 600MG
     Route: 048
     Dates: end: 20050206
  5. PRIADEL [Interacting]
     Dosage: INCREASED FROM 400MG
     Route: 048
     Dates: start: 20050207, end: 20050228
  6. PRIADEL [Interacting]
     Dosage: INCREASED FROM 400MG
     Route: 048
     Dates: start: 20050207, end: 20050228
  7. PRIADEL [Interacting]
     Dosage: INCREASED FROM 400MG
     Route: 048
     Dates: start: 20050207, end: 20050228
  8. BENDROFLUAZIDE [Interacting]
     Indication: HYPERTENSION
     Route: 048
     Dates: end: 20050228
  9. OMEPRAZOLE [Concomitant]
     Route: 048
  10. FLOMAX [Concomitant]
     Route: 048
  11. PROSTAP [Concomitant]
     Route: 065
  12. LORAZEPAM [Concomitant]
     Indication: AGITATION
     Route: 048
     Dates: start: 20050321
  13. ZOPICLONE [Concomitant]
     Route: 065

REACTIONS (9)
  - CEREBROVASCULAR ACCIDENT [None]
  - CONFUSIONAL STATE [None]
  - DRUG INTERACTION [None]
  - DRUG LEVEL INCREASED [None]
  - FACIAL PARESIS [None]
  - GASTROENTERITIS [None]
  - HEMIPARESIS [None]
  - THERAPEUTIC AGENT TOXICITY [None]
  - TRANSIENT ISCHAEMIC ATTACK [None]
